FAERS Safety Report 19958442 (Version 3)
Quarter: 2021Q4

REPORT INFORMATION
  Report Type: Spontaneous
  Country: JP (occurrence: JP)
  Receive Date: 20211015
  Receipt Date: 20211211
  Transmission Date: 20220303
  Serious: Yes (Hospitalization, Other)
  Sender: FDA-Public Use
  Company Number: JP-AMGEN-JPNSP2021157389

PATIENT
  Age: 51 Year
  Sex: Male

DRUGS (3)
  1. BLINCYTO [Suspect]
     Active Substance: BLINATUMOMAB
     Indication: B precursor type acute leukaemia
     Dosage: 9 MICROGRAM
     Route: 041
     Dates: start: 202109, end: 20210912
  2. BLINCYTO [Suspect]
     Active Substance: BLINATUMOMAB
     Dosage: 28 MICROGRAM
     Route: 041
     Dates: start: 20210913
  3. PONATINIB [Suspect]
     Active Substance: PONATINIB
     Indication: Philadelphia chromosome positive
     Dosage: 15 MILLIGRAM, QOD
     Route: 065

REACTIONS (6)
  - Graft versus host disease [Unknown]
  - Organising pneumonia [Unknown]
  - Full blood count decreased [Not Recovered/Not Resolved]
  - Cytokine release syndrome [Unknown]
  - Neutrophil count decreased [Recovering/Resolving]
  - Pneumonia [Unknown]

NARRATIVE: CASE EVENT DATE: 20210101
